FAERS Safety Report 20876046 (Version 2)
Quarter: 2022Q2

REPORT INFORMATION
  Report Type: Spontaneous
  Country: US (occurrence: US)
  Receive Date: 20220526
  Receipt Date: 20220629
  Transmission Date: 20220721
  Serious: No
  Sender: FDA-Public Use
  Company Number: US-PFIZER INC-202200693782

PATIENT
  Age: 27 Year
  Sex: Female
  Weight: 70.31 kg

DRUGS (1)
  1. GENOTROPIN [Suspect]
     Active Substance: SOMATROPIN
     Indication: Growth hormone deficiency
     Dosage: 2 MG, DAILY

REACTIONS (5)
  - Drug dose omission by device [Unknown]
  - Device mechanical issue [Unknown]
  - Incorrect dose administered by device [Unknown]
  - Poor quality device used [Unknown]
  - Device issue [Unknown]

NARRATIVE: CASE EVENT DATE: 20220506
